FAERS Safety Report 7655136-9 (Version None)
Quarter: 2011Q3

REPORT INFORMATION
  Report Type: 
  Country: None (occurrence: None)
  Receive Date: 20110729
  Receipt Date: 20110726
  Transmission Date: 20111222
  Serious: Yes (Other)
  Sender: FDA-Public Use
  Company Number: 1000022248

PATIENT
  Age: 45 Year
  Sex: Male

DRUGS (2)
  1. CELEXA [Suspect]
  2. AMBIEN [Suspect]
     Indication: DEPRESSION
     Dosage: 10 MG PRN (AS NEEDED)

REACTIONS (3)
  - AMNESIA [None]
  - HOMICIDE [None]
  - LOSS OF CONSCIOUSNESS [None]
